FAERS Safety Report 10077016 (Version 1)
Quarter: 2014Q2

REPORT INFORMATION
  Report Type: Spontaneous
  Country: CA (occurrence: None)
  Receive Date: 20140410
  Receipt Date: 20140410
  Transmission Date: 20141212
  Serious: Yes (Hospitalization, Other)
  Sender: FDA-Public Use
  Company Number: AUR-APL-2014-04311

PATIENT
  Age: 64 Year
  Sex: Female
  Weight: 69 kg

DRUGS (33)
  1. ALENDRONIC ACID (ALENDRONIC ACID) [Suspect]
     Indication: PRODUCT USED FOR UNKNOWN INDICATION
  2. LYRICA (PREGABALIN) [Suspect]
     Indication: PRODUCT USED FOR UNKNOWN INDICATION
  3. FISH OIL OMEGA 3 CONCENTRATE [Suspect]
     Indication: PRODUCT USED FOR UNKNOWN INDICATION
  4. ATIVAN (LORAZEPAM) [Suspect]
     Indication: PRODUCT USED FOR UNKNOWN INDICATION
  5. CALCIUM CARBONATE [Suspect]
     Indication: PRODUCT USED FOR UNKNOWN INDICATION
  6. ACIDOPHILUS [Suspect]
     Indication: PRODUCT USED FOR UNKNOWN INDICATION
  7. APO-K [Suspect]
     Indication: PRODUCT USED FOR UNKNOWN INDICATION
  8. APO-SULFATRIM [Suspect]
     Indication: PRODUCT USED FOR UNKNOWN INDICATION
  9. B100 COMPLEX [Suspect]
     Indication: PRODUCT USED FOR UNKNOWN INDICATION
  10. BACLOFEN (BACLOFEN) [Suspect]
     Indication: PRODUCT USED FOR UNKNOWN INDICATION
  11. CELLCEPT (MYCOPHENOLATE MOFETIL) [Suspect]
     Indication: PRODUCT USED FOR UNKNOWN INDICATION
  12. CYMBALTA [Suspect]
     Indication: PRODUCT USED FOR UNKNOWN INDICATION
     Route: 048
  13. DOCUSATE SODIUM (DOCUSATE SODIUM) [Suspect]
     Indication: PRODUCT USED FOR UNKNOWN INDICATION
  14. FUROSEMIDE (FUROSEMIDE) [Suspect]
     Indication: PRODUCT USED FOR UNKNOWN INDICATION
  15. HYDROMORPHONE (HYDROMORPHONE) [Suspect]
     Indication: PRODUCT USED FOR UNKNOWN INDICATION
  16. IMMUNOGLOBULIN HUMAN NORMAL (IMMUNOGLOBULIN HUMAN NORMAL) (IMMUNOGLOBULIN HUMAN NORMAL) [Suspect]
     Indication: PRODUCT USED FOR UNKNOWN INDICATION
     Route: 042
  17. IMODIUM (LOPERAMIDE HYDROCHLORIDE) (LOPERAMIDE) [Suspect]
     Indication: PRODUCT USED FOR UNKNOWN INDICATION
  18. LORATADINE (LORATADINE) (LORATADINE) [Suspect]
     Indication: PRODUCT USED FOR UNKNOWN INDICATION
  19. MELATONIN (MELATONIN) [Suspect]
     Indication: PRODUCT USED FOR UNKNOWN INDICATION
  20. MULTIVITAMINS (MULTIVITAMINS) [Suspect]
     Indication: PRODUCT USED FOR UNKNOWN INDICATION
  21. NASONEX (MOMETASONE FUROATE) [Suspect]
     Indication: PRODUCT USED FOR UNKNOWN INDICATION
  22. NORTRIPTYLINE (NORTRIPTYLINE) [Suspect]
     Indication: PRODUCT USED FOR UNKNOWN INDICATION
  23. NOVOHYDRAZIDE [Suspect]
     Indication: PRODUCT USED FOR UNKNOWN INDICATION
  24. PREDNISONE (PREDNISONE) [Suspect]
     Indication: PRODUCT USED FOR UNKNOWN INDICATION
  25. SENNOSIDES [Suspect]
     Indication: PRODUCT USED FOR UNKNOWN INDICATION
  26. SENOKOT [Suspect]
     Indication: PRODUCT USED FOR UNKNOWN INDICATION
  27. TIZANIDINE (TIZANIDINE) [Suspect]
     Indication: PRODUCT USED FOR UNKNOWN INDICATION
  28. VITAMIN B12 (CYANOCOBALAMIN) [Suspect]
     Indication: PRODUCT USED FOR UNKNOWN INDICATION
  29. VITAMIN C (ASCORBIC ACID) [Suspect]
     Indication: PRODUCT USED FOR UNKNOWN INDICATION
  30. VITAMIN D (ERGOCALCIFEROL) [Suspect]
     Indication: PRODUCT USED FOR UNKNOWN INDICATION
  31. WARFARIN (WARFARIN) [Suspect]
     Indication: PRODUCT USED FOR UNKNOWN INDICATION
  32. ZANTAC (RANITIDINE HYDROCHLORIDE) [Suspect]
     Indication: PRODUCT USED FOR UNKNOWN INDICATION
  33. ZOPICLONE (ZOPICLONE) [Suspect]
     Indication: PRODUCT USED FOR UNKNOWN INDICATION

REACTIONS (4)
  - Coma [None]
  - Gastrooesophageal reflux disease [None]
  - Pneumonia aspiration [None]
  - Somnolence [None]
